FAERS Safety Report 4902851-3 (Version None)
Quarter: 2006Q1

REPORT INFORMATION
  Report Type: 
  Country: None (occurrence: None)
  Receive Date: 20060207
  Receipt Date: 20010220
  Transmission Date: 20060701
  Serious: Yes (Other)
  Sender: FDA-Public Use
  Company Number: ZA-2001-BP-00749

PATIENT
  Age: 28 Year
  Sex: Female

DRUGS (1)
  1. NEVIRAPINE [Suspect]
     Indication: ACQUIRED IMMUNODEFICIENCY SYNDROME
     Route: 048
     Dates: start: 20001215, end: 20001215

REACTIONS (9)
  - ANAEMIA [None]
  - CAESAREAN SECTION [None]
  - CEPHALO-PELVIC DISPROPORTION [None]
  - INCISION SITE COMPLICATION [None]
  - PLATELET COUNT DECREASED [None]
  - POSTPARTUM HAEMORRHAGE [None]
  - TENDERNESS [None]
  - THROMBOSIS [None]
  - WOUND DEHISCENCE [None]
